FAERS Safety Report 10729334 (Version 1)
Quarter: 2015Q1

REPORT INFORMATION
  Report Type: Spontaneous
  Country: PT (occurrence: PT)
  Receive Date: 20150122
  Receipt Date: 20150122
  Transmission Date: 20150721
  Serious: Yes (Disabling)
  Sender: FDA-Public Use
  Company Number: PT-ASTRAZENECA-2015SE05220

PATIENT
  Age: 51 Year
  Sex: Female

DRUGS (3)
  1. MONTECULASTE [Concomitant]
  2. BUDESONIDE+FORMOTEROL [Suspect]
     Active Substance: BUDESONIDE\FORMOTEROL
     Dosage: 320/9 UG, TWO TIMES A DAY
     Route: 055
  3. BUDESONIDE+FORMOTEROL [Suspect]
     Active Substance: BUDESONIDE\FORMOTEROL
     Dosage: 160/4.5 UG, TWO TIMES A DAY
     Route: 055

REACTIONS (2)
  - Nasal polyps [Recovered/Resolved]
  - Bronchial disorder [Recovered/Resolved]
